FAERS Safety Report 9746321 (Version 1)
Quarter: 2013Q4

REPORT INFORMATION
  Report Type: Spontaneous
  Country: US (occurrence: None)
  Receive Date: 20131209
  Receipt Date: 20131209
  Transmission Date: 20140711
  Serious: No
  Sender: FDA-Public Use
  Company Number: None

PATIENT
  Age: 57 Year
  Sex: Female
  Weight: 81.65 kg

DRUGS (1)
  1. MIRVASO [Suspect]
     Indication: ROSACEA
     Dosage: PEA SIZE DROP FACE X5 PLACES, APPLIED TO SURFACE USUALLY THE SKIN
     Route: 061
     Dates: start: 20131118, end: 20131205

REACTIONS (4)
  - Burns first degree [None]
  - Erythema [None]
  - Condition aggravated [None]
  - Burning sensation [None]
